FAERS Safety Report 6103403-2 (Version None)
Quarter: 2009Q1

REPORT INFORMATION
  Report Type: 
  Country: None (occurrence: None)
  Receive Date: 20090305
  Receipt Date: 20090302
  Transmission Date: 20090719
  Serious: Yes (Hospitalization, Other)
  Sender: FDA-Public Use
  Company Number: TR-ALLERGAN-0902271US

PATIENT
  Sex: Female

DRUGS (3)
  1. BOTOX [Suspect]
     Indication: CEREBRAL PALSY
     Dosage: 200 UNITS, SINGLE
     Route: 030
     Dates: start: 20090218, end: 20090218
  2. KETAMINE HCL [Concomitant]
     Indication: ANAESTHESIA
  3. MIDAZOLAM HCL [Concomitant]
     Indication: ANAESTHESIA

REACTIONS (3)
  - CARDIOGENIC SHOCK [None]
  - TACHYARRHYTHMIA [None]
  - VIRAL MYOCARDITIS [None]
